FAERS Safety Report 6702260-0 (Version None)
Quarter: 2010Q2

REPORT INFORMATION
  Report Type: 
  Country: None (occurrence: None)
  Receive Date: 20100429
  Receipt Date: 20100423
  Transmission Date: 20101027
  Serious: Yes (Other)
  Sender: FDA-Public Use
  Company Number: DE-MERCK-1004DEU00095

PATIENT
  Age: 42 Year
  Sex: Male

DRUGS (3)
  1. PROPECIA [Suspect]
     Indication: ANDROGENETIC ALOPECIA
     Route: 048
     Dates: start: 20090101, end: 20100101
  2. PROPECIA [Suspect]
     Route: 048
     Dates: start: 20100401
  3. LEVOTHYROXINE SODIUM [Concomitant]
     Indication: THYROID OPERATION
     Route: 065

REACTIONS (2)
  - MICTURITION DISORDER [None]
  - THYROID DISORDER [None]
